FAERS Safety Report 18656595 (Version 1)
Quarter: 2020Q4

REPORT INFORMATION
  Report Type: Spontaneous
  Country: US (occurrence: US)
  Receive Date: 20201224
  Receipt Date: 20201224
  Transmission Date: 20210114
  Serious: No
  Sender: FDA-Public Use
  Company Number: US-CELGENEUS-USA-20201206274

PATIENT
  Sex: Female
  Weight: 64.01 kg

DRUGS (3)
  1. XARELTO [Concomitant]
     Active Substance: RIVAROXABAN
     Indication: THROMBOSIS
     Dosage: 15 MILLIGRAM
     Route: 065
  2. REVLIMID [Suspect]
     Active Substance: LENALIDOMIDE
     Indication: BREAST CANCER FEMALE
     Dosage: 25 MILLIGRAM
     Route: 048
     Dates: start: 201606
  3. REVLIMID [Suspect]
     Active Substance: LENALIDOMIDE
     Indication: PLASMA CELL MYELOMA

REACTIONS (1)
  - Vitamin D decreased [Not Recovered/Not Resolved]
